FAERS Safety Report 6358900-1 (Version None)
Quarter: 2009Q3

REPORT INFORMATION
  Report Type: 
  Country: None (occurrence: None)
  Receive Date: 20090916
  Receipt Date: 20090810
  Transmission Date: 20100115
  Serious: No
  Sender: FDA-Public Use
  Company Number: US-ABBOTT-09P-163-0590578-00

PATIENT
  Sex: Male
  Weight: 165.71 kg

DRUGS (8)
  1. TRILIPIX [Suspect]
     Indication: LOW DENSITY LIPOPROTEIN INCREASED
     Dates: start: 20090501
  2. TRILIPIX [Suspect]
     Indication: HIGH DENSITY LIPOPROTEIN DECREASED
  3. LASIX [Concomitant]
     Indication: HYPERTENSION
  4. DIOVAN HCT [Concomitant]
     Indication: HYPERTENSION
     Dosage: 160/125 MG
  5. POTASSIUM CHL ER TAB [Concomitant]
     Indication: MINERAL SUPPLEMENTATION
  6. ASPIRIN [Concomitant]
     Indication: PROPHYLAXIS
  7. CLONIDINE [Concomitant]
     Indication: HYPERTENSION
  8. SULAR ER [Concomitant]
     Indication: HYPERTENSION

REACTIONS (1)
  - MUSCULAR WEAKNESS [None]
